FAERS Safety Report 8720320 (Version 3)
Quarter: 2012Q4

REPORT INFORMATION
  Report Type: 
  Country: CA (occurrence: CA)
  Receive Date: 20120813
  Receipt Date: 20121119
  Transmission Date: 20130627
  Serious: Yes (Other)
  Sender: FDA-Public Use
  Company Number: CA-ELI_LILLY_AND_COMPANY-CA201208002805

PATIENT
  Age: 78 Year
  Sex: Female

DRUGS (7)
  1. FORTEO [Suspect]
     Indication: OSTEOPOROSIS
     Dosage: 20 ug, UNK
     Route: 058
     Dates: start: 20110926
  2. CALCIUM [Concomitant]
  3. VITAMIN D NOS [Concomitant]
  4. TYLENOL EXTRA STRENGTH [Concomitant]
  5. HYZAAR [Concomitant]
  6. COUMADIN [Concomitant]
  7. ANTIBIOTICS [Concomitant]

REACTIONS (2)
  - Pulmonary embolism [Recovered/Resolved]
  - Bone pain [Not Recovered/Not Resolved]
